FAERS Safety Report 6609743-2 (Version None)
Quarter: 2010Q1

REPORT INFORMATION
  Report Type: 
  Country: None (occurrence: None)
  Receive Date: 20100302
  Receipt Date: 20100302
  Transmission Date: 20100710
  Serious: Yes (Hospitalization)
  Sender: FDA-Public Use
  Company Number: None

PATIENT
  Age: 48 Year
  Sex: Male

DRUGS (2)
  1. CITALOPRAM HYDROBROMIDE [Suspect]
     Indication: DEPRESSION
     Dosage: 20 MG EVERYDAY PO
     Route: 048
     Dates: start: 20090818, end: 20090925
  2. NICOTINE [Suspect]
     Indication: SMOKING CESSATION THERAPY
     Dosage: 21 MG EVERY TOP
     Route: 061
     Dates: start: 20090914, end: 20090921

REACTIONS (11)
  - ARTHRALGIA [None]
  - DYSPHAGIA [None]
  - EPISTAXIS [None]
  - ERYTHEMA MULTIFORME [None]
  - IMPETIGO [None]
  - MYALGIA [None]
  - PAIN [None]
  - PYREXIA [None]
  - RASH [None]
  - THROAT TIGHTNESS [None]
  - URTICARIA [None]
